FAERS Safety Report 6728980-X (Version None)
Quarter: 2010Q2

REPORT INFORMATION
  Report Type: 
  Country: None (occurrence: None)
  Receive Date: 20100517
  Receipt Date: 20100321
  Transmission Date: 20101027
  Serious: No
  Sender: FDA-Public Use
  Company Number: US-ABBOTT-10P-163-0633517-00

PATIENT
  Sex: Male

DRUGS (2)
  1. SIMCOR [Suspect]
     Indication: HYPERCHOLESTEROLAEMIA
     Dosage: INCREASED FROM 1 TAB TO 2 TABS AT BED TIME
     Dates: start: 20100307
  2. SIMCOR [Suspect]
     Dates: end: 20100306

REACTIONS (1)
  - HEART RATE INCREASED [None]
